FAERS Safety Report 20698038 (Version 1)
Quarter: 2022Q2

REPORT INFORMATION
  Report Type: Spontaneous
  Country: US (occurrence: US)
  Receive Date: 20220412
  Receipt Date: 20220412
  Transmission Date: 20220721
  Serious: Yes (Other)
  Sender: FDA-Public Use
  Company Number: US-SPECGX-T202200454

PATIENT
  Sex: Male
  Weight: 81 kg

DRUGS (14)
  1. OXYCODONE [Suspect]
     Active Substance: OXYCODONE
     Indication: Breakthrough pain
     Dosage: 10 MILLIGRAM, PRN (EVERY SIX HOURS AS NEEDED)
     Route: 065
  2. OXYCODONE [Suspect]
     Active Substance: OXYCODONE
     Dosage: UNK, DOSE INCREASED
     Route: 065
  3. XTAMPZA ER [Suspect]
     Active Substance: OXYCODONE
     Indication: Neuralgia
     Dosage: 49 MILLIGRAM, BID  (36 MG AND 13.5MG)
     Route: 048
  4. XTAMPZA ER [Suspect]
     Active Substance: OXYCODONE
     Dosage: 54 MILLIGRAM, BID (36MG AND 18MG)
     Route: 048
     Dates: start: 2019
  5. XTAMPZA ER [Suspect]
     Active Substance: OXYCODONE
     Dosage: 63 MILLIGRAM, BID (27MG AND 36 MG)
     Route: 048
  6. XTAMPZA ER [Suspect]
     Active Substance: OXYCODONE
     Dosage: 72 MILLIGRAM, BID (36 MG AND 36 MG)
     Route: 048
     Dates: start: 20201102
  7. PERCOCET [Concomitant]
     Active Substance: ACETAMINOPHEN\OXYCODONE HYDROCHLORIDE
     Indication: Breakthrough pain
     Dosage: UNK
     Route: 065
  8. SYMPROIC [Concomitant]
     Active Substance: NALDEMEDINE
     Indication: Product used for unknown indication
     Dosage: UNK
     Route: 065
  9. PLAVIX [Concomitant]
     Active Substance: CLOPIDOGREL BISULFATE
     Indication: Product used for unknown indication
     Dosage: UNK
     Route: 065
  10. CRESTOR [Concomitant]
     Active Substance: ROSUVASTATIN CALCIUM
     Indication: Product used for unknown indication
     Dosage: UNK
     Route: 065
  11. LOSARTAN [Concomitant]
     Active Substance: LOSARTAN
     Indication: Product used for unknown indication
     Dosage: UNK
     Route: 065
  12. PREDNISONE [Concomitant]
     Active Substance: PREDNISONE
     Indication: Product used for unknown indication
     Dosage: 5 MILLIGRAM
     Route: 065
  13. ZOLPIDEM [Concomitant]
     Active Substance: ZOLPIDEM TARTRATE
     Indication: Product used for unknown indication
     Dosage: 10 MILLIGRAM
     Route: 065
  14. FLUTICASONE [Concomitant]
     Active Substance: FLUTICASONE
     Indication: Product used for unknown indication
     Dosage: UNK
     Route: 065

REACTIONS (9)
  - Neuropathy peripheral [Not Recovered/Not Resolved]
  - Condition aggravated [Not Recovered/Not Resolved]
  - Foreign body in throat [Not Recovered/Not Resolved]
  - Malabsorption [Not Recovered/Not Resolved]
  - Drug tolerance [Not Recovered/Not Resolved]
  - Gait disturbance [Not Recovered/Not Resolved]
  - Constipation [Not Recovered/Not Resolved]
  - Product quality issue [Unknown]
  - Drug ineffective [Not Recovered/Not Resolved]
